FAERS Safety Report 17436405 (Version 1)
Quarter: 2020Q1

REPORT INFORMATION
  Report Type: Spontaneous
  Country: DE (occurrence: DE)
  Receive Date: 20200219
  Receipt Date: 20200219
  Transmission Date: 20200409
  Serious: Yes (Other)
  Sender: FDA-Public Use
  Company Number: DE-TEVA-2020-DE-1186280

PATIENT
  Age: 59 Year
  Sex: Female

DRUGS (9)
  1. ELONTRIL 150MG TABLETTEN [Concomitant]
     Route: 065
  2. VALSARTAN ABZ 80MG FILMTABLETTEN [Suspect]
     Active Substance: VALSARTAN
     Indication: HYPERTENSION
     Dosage: 80 MILLIGRAM DAILY;
     Route: 048
     Dates: end: 2018
  3. BRINTELLIX 10MG [Concomitant]
     Route: 065
  4. MILNANEURAX 25MG [Concomitant]
     Route: 065
  5. TIANEURAX 12.5MG [Concomitant]
     Route: 065
  6. PAROXETIN NEURAX 20MG [Concomitant]
     Route: 065
  7. SERTRALIN NEURAX 100 MG [Concomitant]
     Route: 065
  8. MOVIPREP [Concomitant]
     Active Substance: ASCORBIC ACID\POLYETHYLENE GLYCOL 3350\POTASSIUM CHLORIDE\SODIUM ASCORBATE\SODIUM CHLORIDE\SODIUM SULFATE
     Route: 065
  9. CEFPODOXIM 200 MG [Concomitant]
     Route: 065

REACTIONS (2)
  - Breast cancer female [Unknown]
  - Product impurity [Unknown]

NARRATIVE: CASE EVENT DATE: 201806
